FAERS Safety Report 21103261 (Version 2)
Quarter: 2022Q3

REPORT INFORMATION
  Report Type: Report from Study
  Country: US (occurrence: US)
  Receive Date: 20220720
  Receipt Date: 20220919
  Transmission Date: 20221027
  Serious: Yes (Death, Hospitalization)
  Sender: FDA-Public Use
  Company Number: US-JNJFOC-20220734775

PATIENT
  Age: 74 Year
  Sex: Female
  Weight: 98.6 kg

DRUGS (3)
  1. SELEXIPAG [Suspect]
     Active Substance: SELEXIPAG
     Indication: Pulmonary arterial hypertension
     Route: 048
  2. TADALAFIL [Concomitant]
     Active Substance: TADALAFIL
  3. OPSUMIT [Concomitant]
     Active Substance: MACITENTAN

REACTIONS (3)
  - Death [Fatal]
  - Abdominal pain [Unknown]
  - Respiratory distress [Unknown]

NARRATIVE: CASE EVENT DATE: 20220623
